FAERS Safety Report 22869032 (Version 2)
Quarter: 2023Q4

REPORT INFORMATION
  Report Type: Report from Study
  Country: AT (occurrence: AT)
  Receive Date: 20230825
  Receipt Date: 20231002
  Transmission Date: 20240109
  Serious: Yes (Hospitalization, Other)
  Sender: FDA-Public Use
  Company Number: AT-PFIZER INC-PV202300081140

PATIENT
  Age: 79 Year
  Sex: Male
  Weight: 77 kg

DRUGS (5)
  1. ELRANATAMAB [Suspect]
     Active Substance: ELRANATAMAB
     Indication: Plasma cell myeloma
     Dosage: 16 MG, ONCE
     Route: 058
     Dates: start: 20230116, end: 20230116
  2. ELRANATAMAB [Suspect]
     Active Substance: ELRANATAMAB
     Dosage: 32 MG, ONCE
     Route: 058
     Dates: start: 20230119, end: 20230119
  3. ELRANATAMAB [Suspect]
     Active Substance: ELRANATAMAB
     Dosage: 76 MG, WEEKLY
     Route: 058
     Dates: start: 20230123, end: 20230130
  4. ELRANATAMAB [Suspect]
     Active Substance: ELRANATAMAB
     Dosage: 76 MG, WEEKLY
     Route: 058
     Dates: start: 20230214, end: 20230418
  5. DARATUMUMAB [Suspect]
     Active Substance: DARATUMUMAB
     Indication: Plasma cell myeloma
     Dosage: 1800 MG, WEEKLY
     Route: 058
     Dates: start: 20230130, end: 20230130

REACTIONS (7)
  - Cytomegalovirus infection [Recovered/Resolved]
  - Mucosal inflammation [Recovered/Resolved]
  - Weight decreased [Recovered/Resolved]
  - Disturbance in attention [Recovered/Resolved]
  - Psychomotor skills impaired [Recovered/Resolved]
  - Meningitis aseptic [Recovered/Resolved]
  - Meningitis enteroviral [Recovered/Resolved]

NARRATIVE: CASE EVENT DATE: 20230425
